FAERS Safety Report 19570167 (Version 2)
Quarter: 2021Q3

REPORT INFORMATION
  Report Type: Spontaneous
  Country: US (occurrence: US)
  Receive Date: 20210716
  Receipt Date: 20210817
  Transmission Date: 20211014
  Serious: No
  Sender: FDA-Public Use
  Company Number: US-TAKEDA-2021TUS043954

PATIENT
  Sex: Male

DRUGS (2)
  1. ALUNBRIG [Suspect]
     Active Substance: BRIGATINIB
     Indication: BENIGN NEOPLASM
     Dosage: 90 MILLIGRAM, QD
     Route: 065
  2. ALUNBRIG [Suspect]
     Active Substance: BRIGATINIB
     Indication: NEUROFIBROMATOSIS
     Dosage: 180 MILLIGRAM, QD
     Route: 065

REACTIONS (5)
  - Off label use [Unknown]
  - Product physical issue [Unknown]
  - Accidental exposure to product [Unknown]
  - No adverse event [Unknown]
  - Product dose omission issue [Unknown]
